FAERS Safety Report 21771681 (Version 1)
Quarter: 2022Q4

REPORT INFORMATION
  Report Type: Spontaneous
  Country: US (occurrence: None)
  Receive Date: 20221223
  Receipt Date: 20221223
  Transmission Date: 20230113
  Serious: No
  Sender: FDA-Public Use
  Company Number: 2022A388476

PATIENT
  Age: 824 Month
  Sex: Female
  Weight: 56.7 kg

DRUGS (1)
  1. BUDESONIDE\FORMOTEROL\GLYCOPYRRONIUM [Suspect]
     Active Substance: BUDESONIDE\FORMOTEROL\GLYCOPYRRONIUM
     Indication: Asthma
     Route: 055
     Dates: start: 20221108, end: 20221121

REACTIONS (12)
  - Product use issue [Unknown]
  - Product prescribing error [Unknown]
  - Cough [Recovering/Resolving]
  - Influenza like illness [Unknown]
  - Back pain [Unknown]
  - Lethargy [Unknown]
  - Fatigue [Unknown]
  - Hypersomnia [Unknown]
  - Pain [Unknown]
  - Nasopharyngitis [Unknown]
  - Product administration error [Unknown]
  - Memory impairment [Unknown]

NARRATIVE: CASE EVENT DATE: 20221101
